FAERS Safety Report 14318093 (Version 1)
Quarter: 2017Q4

REPORT INFORMATION
  Report Type: Spontaneous
  Country: US (occurrence: US)
  Receive Date: 20171222
  Receipt Date: 20171222
  Transmission Date: 20180321
  Serious: No
  Sender: FDA-Public Use
  Company Number: US-009507513-1712USA010675

PATIENT
  Age: 24 Year
  Sex: Female
  Weight: 64.8 kg

DRUGS (1)
  1. NEXPLANON [Suspect]
     Active Substance: ETONOGESTREL
     Indication: CONTRACEPTION
     Dosage: UNK
     Route: 059
     Dates: start: 201604

REACTIONS (3)
  - Alopecia [Not Recovered/Not Resolved]
  - Menstruation irregular [Recovered/Resolved]
  - Dehydroepiandrosterone decreased [Not Recovered/Not Resolved]

NARRATIVE: CASE EVENT DATE: 2016
